FAERS Safety Report 10162424 (Version 1)
Quarter: 2014Q2

REPORT INFORMATION
  Report Type: Spontaneous
  Country: US (occurrence: US)
  Receive Date: 20140509
  Receipt Date: 20140509
  Transmission Date: 20141212
  Serious: No
  Sender: FDA-Public Use
  Company Number: US-GLAXOSMITHKLINE-A1039550A

PATIENT
  Age: 58 Year
  Sex: Male

DRUGS (21)
  1. BACTROBAN [Suspect]
     Indication: CELLULITIS
     Route: 061
     Dates: start: 2009, end: 2009
  2. BACTROBAN [Suspect]
     Indication: CELLULITIS
     Route: 061
     Dates: start: 201302
  3. DIOVAN [Concomitant]
  4. MACROBID [Concomitant]
  5. KEFLEX [Concomitant]
  6. INSULIN [Concomitant]
  7. CARDIZEM [Concomitant]
  8. COREG [Concomitant]
  9. PRILOSEC [Concomitant]
  10. CARAFATE [Concomitant]
  11. ASPIRIN [Concomitant]
  12. ATIVAN [Concomitant]
  13. NYSTATIN [Concomitant]
  14. CRESTOR [Concomitant]
  15. DIGITALIS [Concomitant]
  16. DIGOXIN [Concomitant]
  17. PRANDIN [Concomitant]
  18. CALCIUM [Concomitant]
  19. LASIX [Concomitant]
  20. PROSCAR [Concomitant]
  21. POTASSIUM CHLORIDE [Concomitant]

REACTIONS (5)
  - Off label use [Unknown]
  - Expired product administered [Unknown]
  - Rash [Recovered/Resolved]
  - Skin irritation [Recovered/Resolved]
  - Application site irritation [Recovered/Resolved]
